FAERS Safety Report 14436271 (Version 1)
Quarter: 2018Q1

REPORT INFORMATION
  Report Type: Spontaneous
  Country: US (occurrence: US)
  Receive Date: 20180125
  Receipt Date: 20180125
  Transmission Date: 20180509
  Serious: Yes (Hospitalization)
  Sender: FDA-Public Use
  Company Number: US-UNITED THERAPEUTICS-UNT-2017-009317

PATIENT
  Age: 55 Year
  Sex: Female
  Weight: 79.82 kg

DRUGS (4)
  1. ADCIRCA [Concomitant]
     Active Substance: TADALAFIL
     Indication: PRODUCT USED FOR UNKNOWN INDICATION
  2. LETAIRIS [Concomitant]
     Active Substance: AMBRISENTAN
     Indication: PRODUCT USED FOR UNKNOWN INDICATION
  3. REMODULIN [Suspect]
     Active Substance: TREPROSTINIL
     Indication: PULMONARY ARTERIAL HYPERTENSION
     Dosage: 0.03275 ?G/KG, CONTINUING
     Route: 058
     Dates: start: 20161202
  4. WARFARIN [Concomitant]
     Active Substance: WARFARIN
     Indication: PRODUCT USED FOR UNKNOWN INDICATION

REACTIONS (1)
  - Fluid retention [Unknown]

NARRATIVE: CASE EVENT DATE: 20170626
